FAERS Safety Report 9925428 (Version 3)
Quarter: 2014Q1

REPORT INFORMATION
  Report Type: Spontaneous
  Country: IL (occurrence: IL)
  Receive Date: 20140226
  Receipt Date: 20140311
  Transmission Date: 20141002
  Serious: Yes (Hospitalization, Other)
  Sender: FDA-Public Use
  Company Number: IL-JNJFOC-20140211507

PATIENT
  Age: 72 Year
  Sex: Male
  Weight: 70 kg

DRUGS (21)
  1. XARELTO [Suspect]
     Indication: CEREBROVASCULAR ACCIDENT PROPHYLAXIS
     Route: 048
     Dates: start: 201401, end: 20140123
  2. XARELTO [Suspect]
     Indication: ATRIAL FIBRILLATION
     Route: 048
     Dates: start: 201401, end: 20140123
  3. ASPIRIN [Suspect]
     Indication: PRODUCT USED FOR UNKNOWN INDICATION
     Route: 048
  4. ENALAPRIL [Suspect]
     Indication: PRODUCT USED FOR UNKNOWN INDICATION
     Route: 048
  5. ALLOPURINOL [Suspect]
     Indication: PRODUCT USED FOR UNKNOWN INDICATION
     Route: 048
  6. ATORVASTATIN [Concomitant]
     Route: 048
  7. JANUVIA [Concomitant]
     Route: 048
  8. JANUVIA [Concomitant]
     Route: 048
  9. METFORMIN [Concomitant]
     Route: 065
  10. LANTUS [Concomitant]
     Dosage: 100 IU/ 1 ML
     Route: 065
  11. OMEPRADEX [Concomitant]
     Route: 048
  12. OMEPRADEX [Concomitant]
     Route: 048
  13. ETHANOL [Concomitant]
     Dosage: 70 %
     Route: 061
  14. CARDILOC [Concomitant]
     Route: 048
  15. VITAMIN D [Concomitant]
     Dosage: 400 IU
     Route: 048
  16. AMLODIPINE MALEATE [Concomitant]
     Route: 048
  17. VITAMIN B12 + FOLIC ACID [Concomitant]
     Route: 048
  18. FUROSEMIDE [Concomitant]
     Route: 048
  19. SPIRONOLACTONE [Concomitant]
     Route: 048
  20. PRADAXA [Concomitant]
     Route: 048
  21. JANUVIA [Concomitant]
     Route: 065

REACTIONS (6)
  - Laryngeal oedema [Recovered/Resolved]
  - Gastrointestinal ulcer haemorrhage [Unknown]
  - Drug hypersensitivity [Recovered/Resolved]
  - Angioedema [Unknown]
  - Subcutaneous haematoma [Recovered/Resolved]
  - Upper respiratory tract infection [Unknown]
